FAERS Safety Report 6390770-8 (Version None)
Quarter: 2009Q4

REPORT INFORMATION
  Report Type: 
  Country: None (occurrence: None)
  Receive Date: 20091001
  Receipt Date: 20090713
  Transmission Date: 20100525
  Serious: No
  Sender: FDA-Public Use
  Company Number: 1000007445

PATIENT
  Age: 76 Year
  Sex: Male

DRUGS (15)
  1. BYSTOLIC [Suspect]
     Indication: HYPERTENSION
     Dosage: 2.5 MG (2.5 MG, 1 IN 1 D), ORAL
     Route: 048
     Dates: start: 20090630
  2. OXYGEN (INHALANT) [Concomitant]
  3. HUMULIN (INJECTION) [Concomitant]
  4. SPIRIVA [Concomitant]
  5. OMEPRAZOLE [Concomitant]
  6. POLYETHYLENE GLYCOL [Concomitant]
  7. FUROSEMIDE [Concomitant]
  8. DIGOXIN [Concomitant]
  9. TERAZOSIN HCL [Concomitant]
  10. WARFARIN SODIUM [Concomitant]
  11. CITALOPRAM HYDROBROMIDE [Concomitant]
  12. ASPIRIN [Concomitant]
  13. ACETAMINOPHEN [Concomitant]
  14. VITAMIN B COMPLEX CAP [Concomitant]
  15. CARVEDILOL [Concomitant]

REACTIONS (5)
  - DYSPNOEA [None]
  - DYSURIA [None]
  - FATIGUE [None]
  - PAIN IN EXTREMITY [None]
  - SOMNOLENCE [None]
